FAERS Safety Report 20100091 (Version 1)
Quarter: 2021Q4

REPORT INFORMATION
  Report Type: Spontaneous
  Country: US (occurrence: US)
  Receive Date: 20211123
  Receipt Date: 20211123
  Transmission Date: 20220304
  Serious: Yes (Other)
  Sender: FDA-Public Use
  Company Number: US-AUROBINDO-AUR-APL-2021-047791

PATIENT
  Age: 68 Year
  Sex: Female

DRUGS (1)
  1. TRANEXAMIC ACID [Suspect]
     Active Substance: TRANEXAMIC ACID
     Indication: Haemoptysis
     Dosage: UNK
     Route: 045

REACTIONS (2)
  - Stress cardiomyopathy [Unknown]
  - Incorrect route of product administration [Unknown]
